FAERS Safety Report 5892833-X (Version None)
Quarter: 2008Q3

REPORT INFORMATION
  Report Type: 
  Country: None (occurrence: None)
  Receive Date: 20080923
  Receipt Date: 20080530
  Transmission Date: 20090109
  Serious: No
  Sender: FDA-Public Use
  Company Number: US-BAYER-200824818NA

PATIENT
  Age: 18 Year
  Sex: Female
  Weight: 48 kg

DRUGS (2)
  1. YASMIN [Suspect]
     Indication: CONTRACEPTION
     Route: 048
     Dates: start: 20070801
  2. INHALER NOS [Concomitant]
     Indication: ASTHMA

REACTIONS (3)
  - ABDOMINAL PAIN [None]
  - NO ADVERSE EVENT [None]
  - VAGINAL DISCHARGE [None]
